FAERS Safety Report 6326381-X (Version None)
Quarter: 2009Q3

REPORT INFORMATION
  Report Type: 
  Country: None (occurrence: None)
  Receive Date: 20090821
  Receipt Date: 20090810
  Transmission Date: 20100115
  Serious: Yes (Other)
  Sender: FDA-Public Use
  Company Number: GB-2009-1672

PATIENT

DRUGS (5)
  1. NAVELBINE [Suspect]
     Indication: BREAST CANCER
  2. CYCLOPHOSPHAMIDE [Suspect]
     Indication: BREAST CANCER
  3. FLUOROURACIL [Suspect]
     Indication: BREAST CANCER
  4. METHOTREXATE [Suspect]
     Indication: BREAST CANCER
  5. MITOXANTRONE [Suspect]
     Indication: BREAST CANCER

REACTIONS (1)
  - ACUTE MYELOID LEUKAEMIA [None]
